FAERS Safety Report 4998031-6 (Version None)
Quarter: 2006Q2

REPORT INFORMATION
  Report Type: 
  Country: None (occurrence: None)
  Receive Date: 20060508
  Receipt Date: 20060428
  Transmission Date: 20061013
  Serious: No
  Sender: FDA-Public Use
  Company Number: 06H-163-0307833-00

PATIENT
  Sex: Female

DRUGS (4)
  1. FENTANYL CITRATE [Suspect]
     Indication: ANAESTHESIA
     Dosage: 2 TO 3/10THS OF A CC, ONCE, INTRATHECAL
     Route: 037
     Dates: start: 20060401, end: 20060401
  2. MORPHINE SULFATE 1MG/ML INJECTION, PRESERV.  FREE, USP, 10 ML AMPULE ( [Suspect]
     Indication: ANAESTHESIA
     Dosage: 4/10THS OF A CC, ONCE, INTRATHECAL
     Route: 037
     Dates: start: 20060401, end: 20060401
  3. 7.5% MARCAINE (BUPIVACAINE) [Concomitant]
  4. 1:1000 EPINEPHRINE (EPINEPHRINE) [Concomitant]

REACTIONS (3)
  - POST PROCEDURAL COMPLICATION [None]
  - POST PROCEDURAL NAUSEA [None]
  - PRURITUS [None]
